FAERS Safety Report 8313551-4 (Version None)
Quarter: 2012Q2

REPORT INFORMATION
  Report Type: 
  Country: None (occurrence: None)
  Receive Date: 20120424
  Receipt Date: 20120416
  Transmission Date: 20120825
  Serious: Yes (Other)
  Sender: FDA-Public Use
  Company Number: 2012SP020441

PATIENT
  Sex: Female

DRUGS (1)
  1. FOLLISTIM [Suspect]
     Dosage: SC
     Route: 058

REACTIONS (2)
  - MULTIPLE SCLEROSIS [None]
  - CEREBRAL INFARCTION [None]
